FAERS Safety Report 20090604 (Version 1)
Quarter: 2021Q4

REPORT INFORMATION
  Report Type: Spontaneous
  Country: US (occurrence: US)
  Receive Date: 20211119
  Receipt Date: 20211119
  Transmission Date: 20220303
  Serious: Yes (Death, Hospitalization, Other)
  Sender: FDA-Public Use
  Company Number: US-GALDERMA-US2021018807

PATIENT

DRUGS (1)
  1. DOXYCYCLINE [Suspect]
     Active Substance: DOXYCYCLINE
     Indication: Abscess limb
     Dosage: 1 DOSAGE FORM
     Route: 065

REACTIONS (11)
  - Post infection glomerulonephritis [Fatal]
  - Uraemic encephalopathy [Fatal]
  - Oliguria [Unknown]
  - Rash pruritic [Unknown]
  - Tubulointerstitial nephritis [Unknown]
  - Renal impairment [Unknown]
  - Mental impairment [Unknown]
  - Hypervolaemia [Unknown]
  - Blood creatinine increased [Unknown]
  - Eosinophilia [Unknown]
  - Intentional product use issue [Recovered/Resolved]
